FAERS Safety Report 15895777 (Version 2)
Quarter: 2019Q1

REPORT INFORMATION
  Report Type: Report from Study
  Country: DE (occurrence: DE)
  Receive Date: 20190131
  Receipt Date: 20190311
  Transmission Date: 20190417
  Serious: Yes (Hospitalization, Other)
  Sender: FDA-Public Use
  Company Number: DE-PFIZER INC-2018267130

PATIENT
  Age: 76 Year
  Sex: Male
  Weight: 100 kg

DRUGS (33)
  1. 5-FLUOROURACIL [Suspect]
     Active Substance: FLUOROURACIL
     Dosage: 4000 MG, WEEKLY
     Route: 042
     Dates: start: 20140923, end: 20140924
  2. AVASTIN [Suspect]
     Active Substance: BEVACIZUMAB
     Dosage: 500 MG, CYCLIC (EVERY 2 WEEKS)
     Route: 042
     Dates: start: 20141208
  3. FOLINIC ACID [Concomitant]
     Active Substance: LEUCOVORIN
     Dosage: 1000 MG, WEEKLY
     Route: 042
     Dates: start: 20181007, end: 20181008
  4. SIMVASTATIN. [Concomitant]
     Active Substance: SIMVASTATIN
     Indication: HYPERCHOLESTEROLAEMIA
     Dosage: 20 MG, 1X/DAY
     Route: 048
  5. AVASTIN [Suspect]
     Active Substance: BEVACIZUMAB
     Indication: COLORECTAL CANCER
     Dosage: 500 MG, CYCLIC (EVERY 2 WEEKS)
     Route: 042
     Dates: start: 20141007
  6. AVASTIN [Suspect]
     Active Substance: BEVACIZUMAB
     Dosage: 500 MG, WEEKLY
     Route: 042
     Dates: start: 20141208
  7. FOLINIC ACID [Concomitant]
     Active Substance: LEUCOVORIN
     Dosage: 1000 MG, CYCLIC (EVERY 2 WEEKS )
     Route: 042
     Dates: start: 20150331, end: 20160127
  8. LISILICH COMP [Concomitant]
     Indication: HYPERTENSION
     Dosage: 40 MG, 1X/DAY
     Route: 048
  9. 5-FLUOROURACIL [Suspect]
     Active Substance: FLUOROURACIL
     Dosage: 4000 MG, WEEKLY
     Route: 042
     Dates: start: 20141007, end: 20141008
  10. AVASTIN [Suspect]
     Active Substance: BEVACIZUMAB
     Dosage: 500 MG, EVERY TWO WEEKS
     Route: 042
     Dates: start: 20150331, end: 20150331
  11. FOLINIC ACID [Concomitant]
     Active Substance: LEUCOVORIN
     Dosage: 1000 MG, WEEKLY
     Route: 042
     Dates: start: 20180923, end: 20180923
  12. IRINOTECAN HCL [Suspect]
     Active Substance: IRINOTECAN HYDROCHLORIDE
     Indication: COLORECTAL CANCER
     Dosage: 160 MG, WEEKLY
     Route: 042
     Dates: start: 20140923, end: 20141007
  13. AVASTIN [Suspect]
     Active Substance: BEVACIZUMAB
     Dosage: 500 MG, CYCLIC (EVERY 2 WEEKS)
     Route: 042
     Dates: start: 20160126, end: 20160126
  14. AVASTIN [Suspect]
     Active Substance: BEVACIZUMAB
     Dosage: 500 MG, CYCLIC (EVERY 2 WEEKS)
     Route: 042
     Dates: start: 20141007
  15. TAMSULOSIN [Concomitant]
     Active Substance: TAMSULOSIN
     Indication: BENIGN PROSTATIC HYPERPLASIA
     Dosage: 0.4 MG, 1X/DAY
     Route: 048
  16. NITRENDIPIN [Concomitant]
     Active Substance: NITRENDIPINE
     Indication: HYPERTENSION
     Dosage: 20 MG, 1X/DAY
     Route: 048
  17. 5-FLUOROURACIL [Suspect]
     Active Substance: FLUOROURACIL
     Dosage: 4000 MG, CYCLIC (EVERY 2 WEEKS )
     Route: 041
     Dates: start: 20150721, end: 20160127
  18. 5-FLUOROURACIL [Suspect]
     Active Substance: FLUOROURACIL
     Dosage: 4000 MG, CYCLIC (EVERY 2 WEEKS )
     Route: 041
     Dates: start: 20150331, end: 20160127
  19. AVASTIN [Suspect]
     Active Substance: BEVACIZUMAB
     Dosage: 500 MG, CYCLIC (EVERY 2 WEEKS)
     Route: 042
     Dates: start: 20150428
  20. ONDANSETRON [Concomitant]
     Active Substance: ONDANSETRON
     Indication: PROPHYLACTIC CHEMOTHERAPY
     Dosage: 8 MG, UNK
     Route: 042
     Dates: start: 20140923
  21. AVASTIN [Suspect]
     Active Substance: BEVACIZUMAB
     Dosage: 500 MG, WEEKLY
     Route: 042
     Dates: start: 20141125
  22. FOLINIC ACID [Concomitant]
     Active Substance: LEUCOVORIN
     Dosage: 1000 MG, CYCLIC (EVERY 2 WEEKS )
     Route: 042
     Dates: start: 20150721, end: 20160127
  23. AVASTIN [Suspect]
     Active Substance: BEVACIZUMAB
     Dosage: 500 MG, CYCLIC (EVERY 2 WEEKS)
     Route: 042
     Dates: start: 20141125
  24. AVASTIN [Suspect]
     Active Substance: BEVACIZUMAB
     Dosage: 500 MG, CYCLIC (EVERY 2 WEEKS)
     Route: 042
     Dates: start: 20150825
  25. AVASTIN [Suspect]
     Active Substance: BEVACIZUMAB
     Dosage: 500 MG, CYCLIC (EVERY 2 WEEKS)
     Route: 042
     Dates: start: 20151229
  26. AVASTIN [Suspect]
     Active Substance: BEVACIZUMAB
     Dosage: 500 MG, WEEKLY
     Dates: start: 20141124
  27. FOLINIC ACID [Concomitant]
     Active Substance: LEUCOVORIN
     Dosage: 1000 MG, CYCLIC
     Route: 042
     Dates: start: 20140923, end: 20150128
  28. FOLINIC ACID [Concomitant]
     Active Substance: LEUCOVORIN
     Dosage: 1000 MG, WEEKLY
     Route: 042
     Dates: start: 20181007, end: 20181007
  29. 5-FLUOROURACIL [Suspect]
     Active Substance: FLUOROURACIL
     Indication: COLORECTAL CANCER
     Dosage: 4000 MG, CYCLIC (EVERY 2 WEEKS)
     Route: 041
     Dates: start: 20140923, end: 20150128
  30. 5-FLUOROURACIL [Suspect]
     Active Substance: FLUOROURACIL
     Dosage: 4000 MG, CYCLIC (EVERY 2 WEEKS)
     Route: 041
     Dates: start: 20150211, end: 20150212
  31. AVASTIN [Suspect]
     Active Substance: BEVACIZUMAB
     Dosage: 500 MG, CYCLIC (EVERY 2 WEEKS)
     Route: 042
     Dates: start: 20141216, end: 20141216
  32. FOLINIC ACID [Concomitant]
     Active Substance: LEUCOVORIN
     Indication: COLORECTAL CANCER
     Dosage: 1000 MG, CYCLIC
     Route: 042
     Dates: start: 20150211, end: 20150212
  33. DEXAMETHASONE. [Concomitant]
     Active Substance: DEXAMETHASONE
     Indication: PROPHYLACTIC CHEMOTHERAPY
     Dosage: 8 MG, UNK
     Route: 042
     Dates: start: 20140923

REACTIONS (30)
  - Diarrhoea [Recovered/Resolved]
  - Abdominal pain lower [Not Recovered/Not Resolved]
  - Depression [Not Recovered/Not Resolved]
  - Weight decreased [Not Recovered/Not Resolved]
  - Osteochondrosis [Not Recovered/Not Resolved]
  - Left ventricular hypertrophy [Recovered/Resolved]
  - Dizziness [Not Recovered/Not Resolved]
  - Abdominal pain [Recovered/Resolved]
  - Cholecystitis acute [Recovered/Resolved]
  - Infection [Recovered/Resolved]
  - Fall [Unknown]
  - Constipation [Not Recovered/Not Resolved]
  - Left atrial dilatation [Not Recovered/Not Resolved]
  - Peripheral sensorimotor neuropathy [Not Recovered/Not Resolved]
  - Upper respiratory tract infection [Recovered/Resolved]
  - Dyspnoea [Not Recovered/Not Resolved]
  - Diarrhoea [Not Recovered/Not Resolved]
  - Aortic aneurysm [Not Recovered/Not Resolved]
  - Osteoarthritis [Not Recovered/Not Resolved]
  - Synovial cyst [Not Recovered/Not Resolved]
  - Nausea [Recovered/Resolved]
  - Nocturia [Not Recovered/Not Resolved]
  - Pulmonary hypertension [Not Recovered/Not Resolved]
  - Asthenia [Not Recovered/Not Resolved]
  - Dyspnoea exertional [Not Recovered/Not Resolved]
  - Microangiopathy [Not Recovered/Not Resolved]
  - Vomiting [Recovered/Resolved]
  - Sleep disorder [Not Recovered/Not Resolved]
  - Paraesthesia [Not Recovered/Not Resolved]
  - Gastroenteritis [Recovered/Resolved]

NARRATIVE: CASE EVENT DATE: 20141009
